FAERS Safety Report 8903403 (Version 3)
Quarter: 2013Q1

REPORT INFORMATION
  Report Type: Report from Study
  Country: US (occurrence: US)
  Receive Date: 20121113
  Receipt Date: 20130301
  Transmission Date: 20140127
  Serious: Yes (Hospitalization)
  Sender: FDA-Public Use
  Company Number: US-JNJFOC-20121103654

PATIENT
  Age: 49 Year
  Sex: Male

DRUGS (9)
  1. REMICADE [Suspect]
     Indication: COLITIS ULCERATIVE
     Dosage: 3RD INFUSION
     Route: 042
     Dates: start: 20121008
  2. REMICADE [Suspect]
     Indication: COLITIS ULCERATIVE
     Route: 042
     Dates: start: 20120917
  3. REMICADE [Suspect]
     Indication: COLITIS ULCERATIVE
     Dosage: LOADING DOSE GIVEN 0,2,6 WEEKS
     Route: 042
     Dates: start: 20120829
  4. ZOLOFT [Concomitant]
     Indication: DEPRESSION
     Route: 065
  5. ACYCLOVIR [Concomitant]
     Indication: HERPES VIRUS INFECTION
     Route: 065
  6. PREDNISONE [Concomitant]
     Route: 065
  7. TRAZODONE [Concomitant]
     Route: 065
  8. SERTRALINE [Concomitant]
     Route: 065
  9. FERROUS SULFATE [Concomitant]
     Route: 065

REACTIONS (2)
  - Infusion related reaction [Recovered/Resolved]
  - Drug ineffective [Unknown]
